FAERS Safety Report 10186341 (Version 1)
Quarter: 2014Q2

REPORT INFORMATION
  Report Type: Spontaneous
  Country: US (occurrence: US)
  Receive Date: 20140521
  Receipt Date: 20140521
  Transmission Date: 20141212
  Serious: No
  Sender: FDA-Public Use
  Company Number: US-ASTRAZENECA-2014SE21936

PATIENT
  Age: 2 Year
  Sex: Male

DRUGS (3)
  1. PULMICORT RESPULES [Suspect]
     Indication: ASTHMA
     Route: 055
  2. ALBUTEROL [Suspect]
     Route: 065
  3. ALLERGY MEDICINE [Concomitant]

REACTIONS (8)
  - Vomiting [Not Recovered/Not Resolved]
  - Somnolence [Not Recovered/Not Resolved]
  - Nervousness [Not Recovered/Not Resolved]
  - Restlessness [Not Recovered/Not Resolved]
  - Crying [Not Recovered/Not Resolved]
  - Cough [Not Recovered/Not Resolved]
  - Growth retardation [Not Recovered/Not Resolved]
  - Intentional product misuse [Not Recovered/Not Resolved]
